FAERS Safety Report 12181539 (Version 1)
Quarter: 2016Q1

REPORT INFORMATION
  Report Type: Spontaneous
  Country: US (occurrence: US)
  Receive Date: 20160315
  Receipt Date: 20160315
  Transmission Date: 20160526
  Serious: No
  Sender: FDA-Public Use
  Company Number: US-009507513-1603USA003939

PATIENT
  Sex: Male

DRUGS (1)
  1. NASONEX [Suspect]
     Active Substance: MOMETASONE FUROATE
     Dosage: 50 MCG/2 SPRAYS ONCE DAILY, INTRANASAL
     Route: 055

REACTIONS (4)
  - Nasal congestion [Unknown]
  - Underdose [Unknown]
  - Product quality issue [Unknown]
  - Rhinorrhoea [Unknown]
